FAERS Safety Report 9003289 (Version 4)
Quarter: 2013Q2

REPORT INFORMATION
  Report Type: Spontaneous
  Country: TW (occurrence: TW)
  Receive Date: 20130108
  Receipt Date: 20130627
  Transmission Date: 20140414
  Serious: Yes (Hospitalization, Other)
  Sender: FDA-Public Use
  Company Number: TW-JNJFOC-20130101873

PATIENT
  Age: 53 Year
  Sex: Male

DRUGS (7)
  1. STELARA [Suspect]
     Indication: PSORIASIS
     Dosage: SECOND DOSE
     Route: 058
     Dates: start: 20130613
  2. STELARA [Suspect]
     Indication: PSORIASIS
     Dosage: FIRST DOSE
     Route: 058
     Dates: start: 20121213
  3. FAMOTIDINE [Concomitant]
     Dosage: POST CIBUM
     Route: 048
  4. URSODEOXYCHOLIC ACID [Concomitant]
     Dosage: POST CIBUM
     Route: 048
  5. CANDESARTAN [Concomitant]
     Dosage: POST CIBUM
     Route: 048
  6. NIFEDIPINE ER [Concomitant]
     Dosage: POST CIBUM
     Route: 048
  7. VYTORIN [Concomitant]
     Dosage: EVERY NIGHT, POST CIBUM
     Route: 048

REACTIONS (6)
  - Cerebrovascular accident [Unknown]
  - Ruptured cerebral aneurysm [Recovering/Resolving]
  - Subarachnoid haemorrhage [Unknown]
  - Hydrocephalus [Unknown]
  - Coma [Not Recovered/Not Resolved]
  - Dermatologic examination abnormal [Unknown]
